FAERS Safety Report 22205939 (Version 1)
Quarter: 2023Q2

REPORT INFORMATION
  Report Type: Spontaneous
  Country: CA (occurrence: CA)
  Receive Date: 20230413
  Receipt Date: 20230413
  Transmission Date: 20230721
  Serious: Yes (Hospitalization)
  Sender: FDA-Public Use
  Company Number: CA-MYLANLABS-2023M1037779

PATIENT
  Age: 33 Year
  Sex: Male

DRUGS (13)
  1. VALPROATE [Suspect]
     Active Substance: VALPROIC ACID
     Indication: Schizoaffective disorder bipolar type
     Dosage: 500 MILLIGRAM, QD
     Route: 048
  2. VALPROATE [Suspect]
     Active Substance: VALPROIC ACID
     Dosage: 1000 MILLIGRAM, QD(HS)
     Route: 048
  3. LORAZEPAM [Suspect]
     Active Substance: LORAZEPAM
     Indication: Schizoaffective disorder bipolar type
     Dosage: 1.5 MILLIGRAM, TID(THREE TIMES A DAY)
     Route: 065
  4. BENZTROPINE [Suspect]
     Active Substance: BENZTROPINE
     Indication: Schizoaffective disorder bipolar type
     Dosage: 1.0 MILLIGRAM, BIDD (TWO TIMES A DAY)
     Route: 065
  5. BENZTROPINE [Suspect]
     Active Substance: BENZTROPINE
     Dosage: 2.0 MILLIGRAM, BIDD (TWO TIMES A DAY)
     Route: 065
  6. ZOPICLONE [Suspect]
     Active Substance: ZOPICLONE
     Indication: Irritability
     Dosage: 15 MILLIGRAM, QID
     Route: 065
  7. ZOPICLONE [Suspect]
     Active Substance: ZOPICLONE
     Indication: Aggression
  8. CARBAMAZEPINE [Suspect]
     Active Substance: CARBAMAZEPINE
     Indication: Schizoaffective disorder bipolar type
     Dosage: 200 MILLIGRAM, BID (TWO TIMES A DAY)
     Route: 065
  9. CARBAMAZEPINE [Suspect]
     Active Substance: CARBAMAZEPINE
     Dosage: 600 MILLIGRAM, BID (TWO TIMES A DAY)
     Route: 065
  10. ZUCLOPENTHIXOL [Suspect]
     Active Substance: ZUCLOPENTHIXOL
     Indication: Schizoaffective disorder bipolar type
     Dosage: 200 MILLIGRAM, Q2W
     Route: 030
  11. ZUCLOPENTHIXOL [Suspect]
     Active Substance: ZUCLOPENTHIXOL
     Dosage: 10 MILLIGRAM, TID
     Route: 048
  12. ZUCLOPENTHIXOL [Suspect]
     Active Substance: ZUCLOPENTHIXOL
     Dosage: 300 MILLIGRAM, Q2W
     Route: 030
  13. ZUCLOPENTHIXOL [Suspect]
     Active Substance: ZUCLOPENTHIXOL
     Dosage: 250 MILLIGRAM, Q2W
     Route: 030

REACTIONS (1)
  - Drug ineffective [Unknown]
